FAERS Safety Report 23570407 (Version 2)
Quarter: 2024Q1

REPORT INFORMATION
  Report Type: Spontaneous
  Country: NL (occurrence: NL)
  Receive Date: 20240227
  Receipt Date: 20240316
  Transmission Date: 20240410
  Serious: Yes (Other)
  Sender: FDA-Public Use
  Company Number: NL-TEVA-VS-3160273

PATIENT
  Age: 83 Year
  Sex: Female
  Weight: 55 kg

DRUGS (5)
  1. OMEPRAZOLE [Suspect]
     Active Substance: OMEPRAZOLE
     Indication: Product used for unknown indication
     Route: 065
  2. ROMOSOZUMAB [Suspect]
     Active Substance: ROMOSOZUMAB
     Indication: Osteoporosis
     Route: 058
  3. ROSUVASTATIN [Concomitant]
     Active Substance: ROSUVASTATIN
     Indication: Dyslipidaemia
     Route: 065
  4. BUPRENORPHINE [Concomitant]
     Active Substance: BUPRENORPHINE
     Indication: Back pain
     Route: 062
  5. OXAZEPAM [Concomitant]
     Active Substance: OXAZEPAM
     Indication: Back pain
     Route: 065

REACTIONS (3)
  - Osteoporosis [Unknown]
  - Thoracic vertebral fracture [Unknown]
  - Lumbar vertebral fracture [Unknown]
